FAERS Safety Report 25607554 (Version 1)
Quarter: 2025Q3

REPORT INFORMATION
  Report Type: Spontaneous
  Country: EU (occurrence: EU)
  Receive Date: 20250725
  Receipt Date: 20250725
  Transmission Date: 20251021
  Serious: Yes (Other)
  Sender: DAIICHI
  Company Number: EU-DSJP-DS-2025-127644-ES

PATIENT
  Age: 76 Year
  Sex: Female

DRUGS (11)
  1. TRASTUZUMAB DERUXTECAN [Suspect]
     Active Substance: TRASTUZUMAB DERUXTECAN
     Indication: Invasive ductal breast carcinoma
     Route: 065
     Dates: start: 202311, end: 202311
  2. TRASTUZUMAB DERUXTECAN [Suspect]
     Active Substance: TRASTUZUMAB DERUXTECAN
     Route: 065
  3. TRASTUZUMAB DERUXTECAN [Suspect]
     Active Substance: TRASTUZUMAB DERUXTECAN
     Route: 065
     Dates: start: 202403, end: 202403
  4. ONDANSETRON [Concomitant]
     Active Substance: ONDANSETRON
     Indication: Antiemetic supportive care
     Route: 042
  5. ONDANSETRON [Concomitant]
     Active Substance: ONDANSETRON
     Dosage: 4 MG, ONCE EVERY 8HR (FOR 3 DAYS)
     Route: 048
  6. DEXAMETHASONE [Concomitant]
     Active Substance: DEXAMETHASONE
     Indication: Antiemetic supportive care
     Route: 042
  7. DEXAMETHASONE [Concomitant]
     Active Substance: DEXAMETHASONE
     Dosage: 4 MG, QD (FOR 3 DAYS)
     Route: 048
  8. METOCLOPRAMIDE HYDROCHLORIDE [Concomitant]
     Active Substance: METOCLOPRAMIDE HYDROCHLORIDE
     Indication: Antiemetic supportive care
     Dosage: 10 MG, ONCE EVERY 8HR (IF NEEDED)
     Route: 048
  9. APREPITANT [Concomitant]
     Active Substance: APREPITANT
     Indication: Antiemetic supportive care
     Route: 042
     Dates: start: 20201020
  10. APREPITANT [Concomitant]
     Active Substance: APREPITANT
     Dosage: 80 MG, QD (FOR 2 DAYS)
     Route: 048
  11. OLANZAPINE [Concomitant]
     Active Substance: OLANZAPINE
     Indication: Antiemetic supportive care
     Dosage: 10 MG, QD (FOR 3 DAYS)
     Route: 048

REACTIONS (4)
  - Metastases to bone [Unknown]
  - Vomiting [Recovered/Resolved]
  - Interstitial lung disease [Unknown]
  - Disease progression [Unknown]

NARRATIVE: CASE EVENT DATE: 20250101
